FAERS Safety Report 20219907 (Version 1)
Quarter: 2021Q4

REPORT INFORMATION
  Report Type: Other
  Country: CN (occurrence: CN)
  Receive Date: 20211222
  Receipt Date: 20211222
  Transmission Date: 20220303
  Serious: Yes (Other)
  Sender: FDA-Public Use
  Company Number: CN-Santen Ltd-2021-CHN-011455

PATIENT
  Age: 69 Year
  Sex: Female

DRUGS (26)
  1. FLUOROMETHOLONE [Suspect]
     Active Substance: FLUOROMETHOLONE
     Indication: Uveitis
     Dosage: 3 TIMES A DAY
     Route: 047
     Dates: start: 201902, end: 201903
  2. FLUOROMETHOLONE [Suspect]
     Active Substance: FLUOROMETHOLONE
     Indication: Keratitis
     Dosage: 2 TIMES A DAY
     Route: 047
     Dates: start: 20190426, end: 201905
  3. TROPICAMIDE [Suspect]
     Active Substance: TROPICAMIDE
     Indication: Uveitis
     Dosage: 2 TIMES A DAY
     Route: 047
     Dates: start: 201902, end: 201903
  4. TROPICAMIDE [Suspect]
     Active Substance: TROPICAMIDE
     Indication: Keratitis
  5. HYALURONATE SODIUM [Suspect]
     Active Substance: HYALURONATE SODIUM
     Indication: Keratopathy
     Dosage: QID
     Route: 047
     Dates: start: 201903, end: 20190508
  6. DEXAMETHASONE [Suspect]
     Active Substance: DEXAMETHASONE
     Indication: Keratopathy
     Dosage: TWICE
     Route: 047
     Dates: start: 20190306, end: 20190306
  7. ATROPINE [Suspect]
     Active Substance: ATROPINE
     Dosage: TWICE
     Route: 047
     Dates: start: 201903, end: 201903
  8. EPINEPHRINE\LIDOCAINE [Suspect]
     Active Substance: EPINEPHRINE\LIDOCAINE
     Indication: Keratopathy
     Dosage: TWICE
     Route: 047
     Dates: start: 20190306, end: 20190306
  9. DEXAMETHASONE [Suspect]
     Active Substance: DEXAMETHASONE
     Indication: Keratopathy
     Dosage: ONCE
     Route: 047
     Dates: start: 20190426, end: 20190426
  10. DEXAMETHASONE\TOBRAMYCIN [Suspect]
     Active Substance: DEXAMETHASONE\TOBRAMYCIN
     Indication: Conjunctivitis allergic
     Dosage: QD
     Route: 047
     Dates: start: 20190206, end: 20190508
  11. EMEDASTINE DIFUMARATE [Suspect]
     Active Substance: EMEDASTINE DIFUMARATE
     Indication: Conjunctivitis allergic
     Dosage: BID
     Route: 047
     Dates: start: 20190206, end: 20190508
  12. RECOMBINANT HUMAN EGF [Suspect]
     Active Substance: HUMAN EPIDERMAL GROWTH FACTOR
     Indication: Conjunctivitis allergic
     Dosage: TID
     Route: 047
     Dates: start: 20190206, end: 20190426
  13. CETIRIZINE [Suspect]
     Active Substance: CETIRIZINE HYDROCHLORIDE
     Indication: Conjunctivitis allergic
     Route: 048
  14. TOBRAMYCIN [Suspect]
     Active Substance: TOBRAMYCIN
     Indication: Uveitis
     Dosage: TID
     Route: 047
     Dates: start: 201902, end: 201903
  15. TOBRAMYCIN [Suspect]
     Active Substance: TOBRAMYCIN
     Indication: Keratitis
  16. PREDNISOLONE ACETATE [Suspect]
     Active Substance: PREDNISOLONE ACETATE
     Indication: Uveitis
     Dosage: 30MG
     Route: 048
     Dates: start: 201902
  17. PREDNISOLONE ACETATE [Suspect]
     Active Substance: PREDNISOLONE ACETATE
     Indication: Keratitis
  18. BLOOD, BOVINE [Suspect]
     Active Substance: BLOOD, BOVINE
     Indication: Keratopathy
     Dosage: QID
     Route: 047
     Dates: start: 201902, end: 20190508
  19. GANCICLOVIR [Suspect]
     Active Substance: GANCICLOVIR
     Indication: Keratopathy
     Dosage: QID
     Route: 047
     Dates: start: 201902, end: 20190508
  20. PREDNISOLONE ACETATE [Suspect]
     Active Substance: PREDNISOLONE ACETATE
     Indication: Keratopathy
     Dosage: QID
     Route: 047
     Dates: start: 20190306, end: 20190426
  21. TRIAMCINOLONE ACETONIDE [Suspect]
     Active Substance: TRIAMCINOLONE ACETONIDE
     Indication: Keratopathy
     Dosage: TWICE
     Route: 047
     Dates: start: 20190306, end: 20190306
  22. TRIAMCINOLONE ACETONIDE [Suspect]
     Active Substance: TRIAMCINOLONE ACETONIDE
     Dosage: TWICE
     Route: 047
     Dates: start: 201903, end: 201903
  23. FAMCICLOVIR [Suspect]
     Active Substance: FAMCICLOVIR
     Indication: Keratopathy
     Dosage: 0.25 G, TID
     Route: 048
     Dates: start: 20190306
  24. FAMCICLOVIR [Suspect]
     Active Substance: FAMCICLOVIR
     Dosage: 0.25G, BID
     Route: 048
     Dates: start: 20190426
  25. PREDNISOLONE [Suspect]
     Active Substance: PREDNISOLONE
     Indication: Keratopathy
     Dosage: QID
     Route: 047
     Dates: start: 201905, end: 20190508
  26. LIDOCAINE [Suspect]
     Active Substance: LIDOCAINE
     Dates: start: 20190426

REACTIONS (1)
  - Keratopathy [Recovering/Resolving]

NARRATIVE: CASE EVENT DATE: 20190508
